FAERS Safety Report 7112563-6 (Version None)
Quarter: 2010Q4

REPORT INFORMATION
  Report Type: 
  Country: None (occurrence: None)
  Receive Date: 20101119
  Receipt Date: 20100511
  Transmission Date: 20110411
  Serious: No
  Sender: FDA-Public Use
  Company Number: US-TEVA-234800USA

PATIENT
  Sex: Female
  Weight: 97.61 kg

DRUGS (2)
  1. ALBUTEROL SULFATE AUTOHALER [Suspect]
     Indication: ASTHMA
     Route: 055
  2. SERETIDE [Concomitant]
     Dosage: 250/50 MG

REACTIONS (2)
  - CARDIAC FLUTTER [None]
  - VENTRICULAR EXTRASYSTOLES [None]
